FAERS Safety Report 8556238-5 (Version None)
Quarter: 2012Q3

REPORT INFORMATION
  Report Type: 
  Country: None (occurrence: None)
  Receive Date: 20120801
  Receipt Date: 20120508
  Transmission Date: 20120928
  Serious: Yes (Other)
  Sender: FDA-Public Use
  Company Number: US-JNJFOC-20120712480

PATIENT

DRUGS (51)
  1. DOXORUBICIN HYDROCHLORIDE [Suspect]
     Indication: WALDENSTROM'S MACROGLOBULINAEMIA
     Dosage: ON DAY 1
     Route: 042
  2. VELCADE [Suspect]
     Dosage: FOR EVERY 6 MONTHS FOR 2 YEARS OR TILL PROGRESSIVE DISEASE (MAINTENANCE)
     Route: 040
  3. VELCADE [Suspect]
     Dosage: 1.0 TO 1.6 MG/M2 ON DAYS 1 AND 8
     Route: 040
  4. VELCADE [Suspect]
     Indication: NON-HODGKIN'S LYMPHOMA
     Dosage: FOR EVERY 6 MONTHS FOR 2 YEARS OR TILL PROGRESSIVE DISEASE (MAINTENANCE)
     Route: 040
  5. RITUXIMAB [Suspect]
     Indication: WALDENSTROM'S MACROGLOBULINAEMIA
     Dosage: MAINTENANCE
     Route: 042
  6. RITUXIMAB [Suspect]
     Dosage: MAINTENANCE
     Route: 042
  7. RITUXIMAB [Suspect]
     Indication: LYMPHOCYTIC LYMPHOMA
     Dosage: ON DAY 1
     Route: 042
  8. CYCLOPHOSPHAMIDE [Suspect]
     Indication: WALDENSTROM'S MACROGLOBULINAEMIA
     Dosage: ON DAY 1
     Route: 042
  9. CYCLOPHOSPHAMIDE [Suspect]
     Indication: B-CELL LYMPHOMA
     Dosage: ON DAY 1
     Route: 042
  10. VINCRISTINE [Suspect]
     Indication: WALDENSTROM'S MACROGLOBULINAEMIA
     Dosage: ON DAY 1 NOT TO EXCEED 1.5 MG FROM LEVEL 1 AND 2 AND NOT TO EXCEED 2 MG FOR LEVEL 3
     Route: 042
  11. VINCRISTINE [Suspect]
     Indication: LYMPHOCYTIC LYMPHOMA
     Dosage: ON DAY 1 NOT TO EXCEED 1.5 MG FROM LEVEL 1 AND 2 AND NOT TO EXCEED 2 MG FOR LEVEL 3
     Route: 042
  12. DIPHENHYDRAMINE HCL [Concomitant]
     Indication: PROPHYLAXIS
     Route: 048
  13. ACETAMINOPHEN [Concomitant]
     Indication: PROPHYLAXIS
     Route: 048
  14. DOXORUBICIN HYDROCHLORIDE [Suspect]
     Indication: LYMPHOMA
     Dosage: ON DAY 1
     Route: 042
  15. DOXORUBICIN HYDROCHLORIDE [Suspect]
     Indication: NON-HODGKIN'S LYMPHOMA
     Dosage: ON DAY 1
     Route: 042
  16. VELCADE [Suspect]
     Indication: B-CELL LYMPHOMA
     Dosage: 1.0 TO 1.6 MG/M2 ON DAYS 1 AND 8
     Route: 040
  17. VELCADE [Suspect]
     Dosage: 1.0 TO 1.6 MG/M2 ON DAYS 1 AND 8
     Route: 040
  18. RITUXIMAB [Suspect]
     Dosage: MAINTENANCE
     Route: 042
  19. VELCADE [Suspect]
     Indication: LYMPHOMA
     Dosage: 1.0 TO 1.6 MG/M2 ON DAYS 1 AND 8
     Route: 040
  20. RITUXIMAB [Suspect]
     Dosage: ON DAY 1
     Route: 042
  21. ONDANSETRON [Concomitant]
     Indication: NAUSEA
     Route: 042
  22. VELCADE [Suspect]
     Indication: LYMPHOCYTIC LYMPHOMA
     Dosage: FOR EVERY 6 MONTHS FOR 2 YEARS OR TILL PROGRESSIVE DISEASE (MAINTENANCE)
     Route: 040
  23. VINCRISTINE [Suspect]
     Dosage: ON DAY 1 NOT TO EXCEED 1.5 MG FROM LEVEL 1 AND 2 AND NOT TO EXCEED 2 MG FOR LEVEL 3
     Route: 042
  24. PREDNISONE [Suspect]
     Indication: LYMPHOMA
     Dosage: ON DAYS 1-5
     Route: 048
  25. PREDNISONE [Suspect]
     Indication: B-CELL LYMPHOMA
     Dosage: ON DAYS 1-5
     Route: 048
  26. RITUXIMAB [Suspect]
     Indication: B-CELL LYMPHOMA
     Dosage: ON DAY 1
     Route: 042
  27. RITUXIMAB [Suspect]
     Indication: NON-HODGKIN'S LYMPHOMA
     Dosage: ON DAY 1
     Route: 042
  28. RITUXIMAB [Suspect]
     Dosage: MAINTENANCE
     Route: 042
  29. CYCLOPHOSPHAMIDE [Suspect]
     Indication: LYMPHOMA
     Dosage: ON DAY 1
     Route: 042
  30. CYCLOPHOSPHAMIDE [Suspect]
     Indication: NON-HODGKIN'S LYMPHOMA
     Dosage: ON DAY 1
     Route: 042
  31. VELCADE [Suspect]
     Dosage: FOR EVERY 6 MONTHS FOR 2 YEARS OR TILL PROGRESSIVE DISEASE (MAINTENANCE)
     Route: 040
  32. RITUXIMAB [Suspect]
     Dosage: MAINTENANCE
     Route: 042
  33. CYCLOPHOSPHAMIDE [Suspect]
     Indication: LYMPHOCYTIC LYMPHOMA
     Dosage: ON DAY 1
     Route: 042
  34. VINCRISTINE [Suspect]
     Indication: B-CELL LYMPHOMA
     Dosage: ON DAY 1 NOT TO EXCEED 1.5 MG FROM LEVEL 1 AND 2 AND NOT TO EXCEED 2 MG FOR LEVEL 3
     Route: 042
  35. VINCRISTINE [Suspect]
     Indication: NON-HODGKIN'S LYMPHOMA
     Dosage: ON DAY 1 NOT TO EXCEED 1.5 MG FROM LEVEL 1 AND 2 AND NOT TO EXCEED 2 MG FOR LEVEL 3
     Route: 042
  36. PREDNISONE [Suspect]
     Indication: WALDENSTROM'S MACROGLOBULINAEMIA
     Dosage: ON DAYS 1-5
     Route: 048
  37. PREDNISONE [Suspect]
     Indication: LYMPHOCYTIC LYMPHOMA
     Dosage: ON DAYS 1-5
     Route: 048
  38. PREDNISONE [Suspect]
     Dosage: ON DAYS 1-5
     Route: 048
  39. DOXORUBICIN HYDROCHLORIDE [Suspect]
     Indication: LYMPHOCYTIC LYMPHOMA
     Dosage: ON DAY 1
     Route: 042
  40. DOXORUBICIN HYDROCHLORIDE [Suspect]
     Dosage: ON DAY 1
     Route: 042
  41. VELCADE [Suspect]
     Dosage: FOR EVERY 6 MONTHS FOR 2 YEARS OR TILL PROGRESSIVE DISEASE (MAINTENANCE)
     Route: 040
  42. VELCADE [Suspect]
     Dosage: FOR EVERY 6 MONTHS FOR 2 YEARS OR TILL PROGRESSIVE DISEASE (MAINTENANCE)
     Route: 040
  43. RITUXIMAB [Suspect]
     Indication: LYMPHOMA
     Dosage: ON DAY 1
     Route: 042
  44. RITUXIMAB [Suspect]
     Dosage: MAINTENANCE
     Route: 042
  45. DOXORUBICIN HYDROCHLORIDE [Suspect]
     Indication: B-CELL LYMPHOMA
     Dosage: ON DAY 1
     Route: 042
  46. VELCADE [Suspect]
     Indication: WALDENSTROM'S MACROGLOBULINAEMIA
     Dosage: 1.0 TO 1.6 MG/M2 ON DAYS 1 AND 8
     Route: 040
  47. VELCADE [Suspect]
     Dosage: 1.0 TO 1.6 MG/M2 ON DAYS 1 AND 8
     Route: 040
  48. RITUXIMAB [Suspect]
     Dosage: ON DAY 1
     Route: 042
  49. CYCLOPHOSPHAMIDE [Suspect]
     Dosage: ON DAY 1
     Route: 042
  50. VINCRISTINE [Suspect]
     Indication: LYMPHOMA
     Dosage: ON DAY 1 NOT TO EXCEED 1.5 MG FROM LEVEL 1 AND 2 AND NOT TO EXCEED 2 MG FOR LEVEL 3
     Route: 042
  51. PREDNISONE [Suspect]
     Indication: NON-HODGKIN'S LYMPHOMA
     Dosage: ON DAYS 1-5
     Route: 048

REACTIONS (11)
  - MOTOR DYSFUNCTION [None]
  - DYSPEPSIA [None]
  - BLOOD POTASSIUM DECREASED [None]
  - NEUTROPENIA [None]
  - PAIN [None]
  - PERIPHERAL SENSORY NEUROPATHY [None]
  - RASH [None]
  - FATIGUE [None]
  - NAUSEA [None]
  - DIARRHOEA [None]
  - THROMBOCYTOPENIA [None]
